FAERS Safety Report 14917339 (Version 3)
Quarter: 2018Q4

REPORT INFORMATION
  Report Type: Spontaneous
  Country: US (occurrence: US)
  Receive Date: 20180521
  Receipt Date: 20181107
  Transmission Date: 20190204
  Serious: Yes (Other)
  Sender: FDA-Public Use
  Company Number: US-AMGEN-USASP2018066941

PATIENT
  Sex: Female

DRUGS (1)
  1. ENBREL [Suspect]
     Active Substance: ETANERCEPT
     Indication: PRODUCT USED FOR UNKNOWN INDICATION
     Dosage: 25 MG, UNK
     Route: 058

REACTIONS (7)
  - Joint swelling [Unknown]
  - Joint stiffness [Unknown]
  - Cataract operation [Unknown]
  - Injection site reaction [Not Recovered/Not Resolved]
  - Tooth infection [Unknown]
  - Arthralgia [Unknown]
  - Lymphoedema [Unknown]
